FAERS Safety Report 9485595 (Version 1)
Quarter: 2013Q3

REPORT INFORMATION
  Report Type: Spontaneous
  Country: HR (occurrence: HR)
  Receive Date: 20130829
  Receipt Date: 20130829
  Transmission Date: 20140515
  Serious: Yes (Hospitalization, Disabling)
  Sender: FDA-Public Use
  Company Number: HR-ABBOTT-13X-216-1138782-00

PATIENT
  Sex: Male

DRUGS (3)
  1. DEPAKINE CHRONO [Suspect]
     Indication: BIPOLAR DISORDER
     Dosage: EXTENDED RELEASE, 300 MILLIGRAM(S); DAILY
     Route: 048
  2. ZOLOFT [Suspect]
     Indication: PRODUCT USED FOR UNKNOWN INDICATION
     Route: 048
  3. CERSON (NITRAZEPAM) [Suspect]
     Indication: PRODUCT USED FOR UNKNOWN INDICATION
     Route: 048

REACTIONS (3)
  - Nerve injury [Not Recovered/Not Resolved]
  - Poisoning [Recovered/Resolved]
  - Monoparesis [Not Recovered/Not Resolved]
